FAERS Safety Report 5407509-2 (Version None)
Quarter: 2007Q3

REPORT INFORMATION
  Report Type: 
  Country: None (occurrence: None)
  Receive Date: 20070807
  Receipt Date: 20070726
  Transmission Date: 20080115
  Serious: Yes (Other)
  Sender: FDA-Public Use
  Company Number: IE-PFIZER INC-2007062762

PATIENT
  Sex: Female

DRUGS (2)
  1. LUSTRAL [Suspect]
     Route: 048
  2. XANAX [Concomitant]

REACTIONS (3)
  - ANXIETY [None]
  - DRUG INEFFECTIVE [None]
  - ILEOSTOMY [None]
